FAERS Safety Report 5526332-1 (Version None)
Quarter: 2007Q4

REPORT INFORMATION
  Report Type: 
  Country: None (occurrence: None)
  Receive Date: 20071121
  Receipt Date: 20071121
  Transmission Date: 20080405
  Serious: Yes (Hospitalization)
  Sender: FDA-Public Use
  Company Number: None

PATIENT
  Age: 62 Year
  Sex: Male
  Weight: 95 kg

DRUGS (1)
  1. ERBITUX [Suspect]
     Indication: NEOPLASM MALIGNANT
     Dosage: 900 MG 1X OVER 2 HOURS IV
     Route: 042
     Dates: start: 20070906

REACTIONS (6)
  - DYSPNOEA [None]
  - ERYTHEMA [None]
  - FLUSHING [None]
  - OXYGEN SATURATION DECREASED [None]
  - RESTLESSNESS [None]
  - URTICARIA [None]
